FAERS Safety Report 21918693 (Version 2)
Quarter: 2023Q1

REPORT INFORMATION
  Report Type: Report from Study
  Country: IE (occurrence: IE)
  Receive Date: 20230127
  Receipt Date: 20230130
  Transmission Date: 20230417
  Serious: Yes (Death)
  Sender: FDA-Public Use
  Company Number: IE-002147023-NVSC2023IE017950

PATIENT
  Age: 73 Year
  Sex: Female
  Weight: 41.9 kg

DRUGS (1)
  1. ALPELISIB [Suspect]
     Active Substance: ALPELISIB
     Indication: Colon cancer metastatic
     Dosage: 300 MG, QD
     Route: 048
     Dates: start: 20221024, end: 20221216

REACTIONS (3)
  - Metastases to central nervous system [Fatal]
  - Diplopia [Fatal]
  - Headache [Fatal]

NARRATIVE: CASE EVENT DATE: 20221122
